FAERS Safety Report 24746375 (Version 4)
Quarter: 2025Q1

REPORT INFORMATION
  Report Type: Spontaneous
  Country: RS (occurrence: RS)
  Receive Date: 20241218
  Receipt Date: 20250130
  Transmission Date: 20250408
  Serious: Yes (Hospitalization, Other)
  Sender: ALEXION PHARMACEUTICALS
  Company Number: RS-ASTRAZENECA-202412BKN008491RS

PATIENT
  Age: 63 Year
  Weight: 70 kg

DRUGS (7)
  1. SYMBICORT [Suspect]
     Active Substance: BUDESONIDE\FORMOTEROL FUMARATE DIHYDRATE
     Route: 065
  2. ALBUTEROL [Concomitant]
     Active Substance: ALBUTEROL
     Route: 065
  3. MONTELUKAST [Concomitant]
     Active Substance: MONTELUKAST
     Route: 065
  4. SALMETEROL [Concomitant]
     Active Substance: SALMETEROL
     Route: 065
  5. FLUTICASONE [Concomitant]
     Active Substance: FLUTICASONE
     Route: 065
  6. BECLOMETHASONE [Concomitant]
     Active Substance: BECLOMETHASONE
     Route: 065
  7. FASENRA [Concomitant]
     Active Substance: BENRALIZUMAB

REACTIONS (2)
  - COVID-19 pneumonia [Unknown]
  - Asthma [Recovered/Resolved]
